FAERS Safety Report 9045262 (Version 1)
Quarter: 2013Q1

REPORT INFORMATION
  Report Type: Report from Study
  Country: US (occurrence: US)
  Receive Date: 20130131
  Receipt Date: 20130131
  Transmission Date: 20140127
  Serious: Yes (Hospitalization)
  Sender: FDA-Public Use
  Company Number: US-ABBOTT-12P-163-0993063-00

PATIENT
  Sex: Female

DRUGS (1)
  1. HUMIRA [Suspect]
     Indication: CROHN^S DISEASE
     Route: 058
     Dates: start: 201203

REACTIONS (6)
  - Diarrhoea [Unknown]
  - Decreased appetite [Unknown]
  - Crohn^s disease [Unknown]
  - Drug ineffective [Unknown]
  - Menstruation irregular [Unknown]
  - Abdominal pain [Unknown]
